FAERS Safety Report 7831329-2 (Version None)
Quarter: 2011Q4

REPORT INFORMATION
  Report Type: 
  Country: None (occurrence: None)
  Receive Date: 20111021
  Receipt Date: 20111010
  Transmission Date: 20120403
  Serious: Yes (Hospitalization, Disabling, Other)
  Sender: FDA-Public Use
  Company Number: US-MERCK-1103USA03006

PATIENT
  Age: 48 Year
  Sex: Female
  Weight: 85 kg

DRUGS (12)
  1. FOSAMAX [Suspect]
     Route: 048
     Dates: start: 20020129, end: 20080301
  2. CELEBREX [Concomitant]
     Route: 065
  3. OS-CAL + D [Concomitant]
     Route: 065
  4. CITRACAL [Concomitant]
     Route: 065
  5. ESTRACE [Concomitant]
     Route: 065
  6. VITAMINS (UNSPECIFIED) [Concomitant]
     Route: 065
  7. VITAMIN D (UNSPECIFIED) [Concomitant]
     Route: 065
  8. EVISTA [Concomitant]
     Route: 065
  9. TYLENOL-500 [Concomitant]
     Route: 065
     Dates: start: 20070110
  10. OS-CAL [Concomitant]
     Route: 065
  11. FOSAMAX [Suspect]
     Indication: OSTEOPOROSIS
     Route: 048
     Dates: start: 20020129, end: 20080301
  12. ALENDRONATE SODIUM [Suspect]
     Indication: OSTEOPOROSIS
     Route: 048
     Dates: start: 20080312, end: 20100401

REACTIONS (31)
  - FRACTURE NONUNION [None]
  - NODAL OSTEOARTHRITIS [None]
  - FATIGUE [None]
  - POLYP COLORECTAL [None]
  - PAIN [None]
  - FEMUR FRACTURE [None]
  - GOITRE [None]
  - HYPOTHYROIDISM [None]
  - SCAR [None]
  - BONE PAIN [None]
  - DRUG INEFFECTIVE [None]
  - MUSCLE SPASMS [None]
  - PATELLOFEMORAL PAIN SYNDROME [None]
  - PALPITATIONS [None]
  - GROIN PAIN [None]
  - FALL [None]
  - HAEMOGLOBIN DECREASED [None]
  - HYPERCHOLESTEROLAEMIA [None]
  - SPINAL OSTEOARTHRITIS [None]
  - GASTROINTESTINAL TRACT ADENOMA [None]
  - HYPERTENSION [None]
  - TOOTH FRACTURE [None]
  - DYSPEPSIA [None]
  - OEDEMA [None]
  - WEIGHT DECREASED [None]
  - FOOT FRACTURE [None]
  - DENTAL CARIES [None]
  - LOW TURNOVER OSTEOPATHY [None]
  - BACK PAIN [None]
  - LIP INJURY [None]
  - IMPAIRED HEALING [None]
